FAERS Safety Report 6598639-0 (Version None)
Quarter: 2010Q1

REPORT INFORMATION
  Report Type: 
  Country: None (occurrence: None)
  Receive Date: 20100219
  Receipt Date: 20100219
  Transmission Date: 20100710
  Serious: Yes (Life-Threatening, Hospitalization, Disabling, Other)
  Sender: FDA-Public Use
  Company Number: None

PATIENT
  Sex: Male
  Weight: 92.3 kg

DRUGS (2)
  1. LIPITOR [Suspect]
     Indication: BLOOD CHOLESTEROL INCREASED
     Dosage: LIPITOR 20MG DAILY ORAL
     Route: 048
     Dates: start: 19940601
  2. LIPITOR [Suspect]
     Indication: BLOOD CHOLESTEROL INCREASED
     Dosage: LIPITOR 40MG DAILY ORAL
     Route: 048
     Dates: end: 20030101

REACTIONS (10)
  - ANGIOSARCOMA [None]
  - APPARENT DEATH [None]
  - CARDIAC ARREST [None]
  - METASTASIS [None]
  - MUSCLE CONTRACTIONS INVOLUNTARY [None]
  - MUSCLE DISORDER [None]
  - MUSCLE SPASMS [None]
  - MYALGIA [None]
  - MYOPATHY [None]
  - TUMOUR PERFORATION [None]
